FAERS Safety Report 4471368-5 (Version None)
Quarter: 2004Q4

REPORT INFORMATION
  Report Type: 
  Country: None (occurrence: None)
  Receive Date: 20041006
  Receipt Date: 20040923
  Transmission Date: 20050328
  Serious: Yes (Death, Hospitalization)
  Sender: FDA-Public Use
  Company Number: 2004UW19873

PATIENT
  Age: 21 Year
  Sex: Female

DRUGS (7)
  1. ELAVIL [Suspect]
     Dosage: 700 MG DAILY; PO
     Route: 048
  2. VIOXX [Suspect]
     Dosage: 750 MG DAILY; PO
     Route: 048
  3. FLEXERIL [Suspect]
     Dosage: 300 MG DAILY; PO
     Route: 048
  4. ACETAMINOPHEN [Suspect]
     Dosage: 30 G
  5. TRAMADOL HYDROCHLORIDE [Suspect]
     Dosage: 3G
  6. TIZANIDINE HYDROCHLORIDE [Suspect]
     Dosage: 120 MG DAILY; PO
     Route: 048
  7. OMEPRAZOLE [Suspect]
     Dosage: 300 MG DAILY; PO
     Route: 048

REACTIONS (9)
  - ABNORMAL CHEST SOUND [None]
  - AGGRESSION [None]
  - ASPIRATION [None]
  - COMPLETED SUICIDE [None]
  - DEPRESSED LEVEL OF CONSCIOUSNESS [None]
  - DRUG TOXICITY [None]
  - MULTIPLE DRUG OVERDOSE INTENTIONAL [None]
  - SEDATION [None]
  - VOMITING [None]
